FAERS Safety Report 11601440 (Version 1)
Quarter: 2015Q4

REPORT INFORMATION
  Report Type: Spontaneous
  Country: US (occurrence: US)
  Receive Date: 20151006
  Receipt Date: 20151006
  Transmission Date: 20160304
  Serious: No
  Sender: FDA-Public Use
  Company Number: US-AMGEN-USASP2015026715

PATIENT
  Age: 60 Year
  Sex: Female
  Weight: 54.42 kg

DRUGS (1)
  1. PROLIA [Suspect]
     Active Substance: DENOSUMAB
     Indication: OSTEOPOROSIS POSTMENOPAUSAL
     Dosage: 60 MG, Q6MO
     Route: 058
     Dates: start: 20150226

REACTIONS (16)
  - Oral candidiasis [Unknown]
  - Nasopharyngitis [Recovered/Resolved]
  - Skin burning sensation [Unknown]
  - Urinary tract infection [Recovered/Resolved]
  - Hypersensitivity [Unknown]
  - Asthma [Unknown]
  - Rash [Unknown]
  - Headache [Not Recovered/Not Resolved]
  - Fatigue [Not Recovered/Not Resolved]
  - Dizziness [Unknown]
  - Nausea [Unknown]
  - Dyspnoea [Recovered/Resolved]
  - Muscle spasms [Not Recovered/Not Resolved]
  - Arthralgia [Recovering/Resolving]
  - Paraesthesia [Unknown]
  - Nasal congestion [Recovered/Resolved]

NARRATIVE: CASE EVENT DATE: 20150227
